FAERS Safety Report 6578501-X (Version None)
Quarter: 2010Q1

REPORT INFORMATION
  Report Type: 
  Country: None (occurrence: None)
  Receive Date: 20100211
  Receipt Date: 20100208
  Transmission Date: 20100710
  Serious: Yes (Death)
  Sender: FDA-Public Use
  Company Number: PHEH2010US02115

PATIENT
  Sex: Female

DRUGS (1)
  1. RECLAST [Suspect]
     Indication: SENILE OSTEOPOROSIS
     Dosage: 5 MG, 1 YEAR
     Route: 042
     Dates: start: 20090326

REACTIONS (3)
  - CARDIAC ARREST [None]
  - PARKINSON'S DISEASE [None]
  - PNEUMONIA ASPIRATION [None]
